FAERS Safety Report 15180886 (Version 1)
Quarter: 2018Q3

REPORT INFORMATION
  Report Type: Spontaneous
  Country: DE (occurrence: DE)
  Receive Date: 20180723
  Receipt Date: 20180723
  Transmission Date: 20181010
  Serious: Yes (Hospitalization, Other)
  Sender: FDA-Public Use
  Company Number: DE-PFIZER INC-2018290399

PATIENT
  Age: 25 Year
  Sex: Female

DRUGS (4)
  1. GONAL?F [Suspect]
     Active Substance: FOLLITROPIN
  2. FRAGMIN P FORTE [Suspect]
     Active Substance: DALTEPARIN SODIUM
  3. ORGALUTRAN [Suspect]
     Active Substance: GANIRELIX ACETATE
  4. OVITRELLE [Suspect]
     Active Substance: CHORIOGONADOTROPIN ALFA

REACTIONS (2)
  - Ovarian hyperstimulation syndrome [Recovered/Resolved]
  - Ascites [Recovered/Resolved]

NARRATIVE: CASE EVENT DATE: 20180418
